FAERS Safety Report 8449163-1 (Version None)
Quarter: 2012Q2

REPORT INFORMATION
  Report Type: 
  Country: None (occurrence: None)
  Receive Date: 20120612
  Receipt Date: 20120530
  Transmission Date: 20120825
  Serious: Yes (Hospitalization, Other)
  Sender: FDA-Public Use
  Company Number: 2012-001837

PATIENT
  Age: 74 Year
  Sex: Female

DRUGS (5)
  1. NORVASC [Concomitant]
  2. RISEDRONATE SODIUM [Suspect]
     Indication: OSTEOPOROSIS
     Dosage: 17.5 MG WEEKLY, ORAL
     Route: 048
     Dates: start: 20010101
  3. METHYLCOBAL (CYANOCOBALAMIN) [Concomitant]
  4. CANDESARTAN CILEXETIL [Concomitant]
  5. ALFAROL (ALFACALCIDOL) [Concomitant]

REACTIONS (12)
  - DYSSTASIA [None]
  - WHITE BLOOD CELL COUNT INCREASED [None]
  - EXOSTOSIS [None]
  - BLOOD UREA INCREASED [None]
  - PROTEIN TOTAL DECREASED [None]
  - BLOOD ALBUMIN DECREASED [None]
  - OEDEMA PERIPHERAL [None]
  - ATYPICAL FEMUR FRACTURE [None]
  - FALL [None]
  - HAEMOGLOBIN DECREASED [None]
  - INJURY [None]
  - BLOOD CHOLINESTERASE INCREASED [None]
